FAERS Safety Report 7430898-4 (Version None)
Quarter: 2011Q2

REPORT INFORMATION
  Report Type: 
  Country: None (occurrence: None)
  Receive Date: 20110421
  Receipt Date: 20110408
  Transmission Date: 20111010
  Serious: Yes (Death, Hospitalization, Other)
  Sender: FDA-Public Use
  Company Number: ES-CELGENEUS-144-50794-10060237

PATIENT
  Sex: Female
  Weight: 60 kg

DRUGS (5)
  1. VIDAZA [Suspect]
     Dosage: 75 MILLIGRAM/SQ. METER
     Route: 058
  2. VIDAZA [Suspect]
     Dosage: 50 MILLIGRAM/SQ. METER
     Route: 058
  3. VALSARTAN [Concomitant]
     Dosage: 160 MILLIGRAM
     Route: 065
  4. VIDAZA [Suspect]
     Dosage: 75 MILLIGRAM/SQ. METER
     Route: 058
     Dates: start: 20081031, end: 20091103
  5. BISOPROLOL FUMARATE [Concomitant]
     Dosage: 2.5 MILLIGRAM
     Route: 065

REACTIONS (4)
  - FEBRILE NEUTROPENIA [None]
  - PURPURA [None]
  - PNEUMONIA FUNGAL [None]
  - ACUTE MYELOID LEUKAEMIA [None]
